FAERS Safety Report 11240646 (Version 3)
Quarter: 2015Q3

REPORT INFORMATION
  Report Type: Spontaneous
  Country: US (occurrence: US)
  Receive Date: 20150706
  Receipt Date: 20150923
  Transmission Date: 20151125
  Serious: Yes (Other)
  Sender: FDA-Public Use
  Company Number: US-PFIZER INC-2015219261

PATIENT
  Age: 40 Year
  Sex: Female
  Weight: 88.44 kg

DRUGS (1)
  1. LYRICA [Suspect]
     Active Substance: PREGABALIN
     Indication: FIBROMYALGIA
     Dosage: 225 MG, 2X/DAY
     Route: 048

REACTIONS (3)
  - Atrial septal defect [Unknown]
  - Limb discomfort [Unknown]
  - Thrombosis [Unknown]

NARRATIVE: CASE EVENT DATE: 20140619
